FAERS Safety Report 18673415 (Version 1)
Quarter: 2020Q4

REPORT INFORMATION
  Report Type: Spontaneous
  Country: QA (occurrence: QA)
  Receive Date: 20201229
  Receipt Date: 20201229
  Transmission Date: 20210114
  Serious: Yes (Hospitalization)
  Sender: FDA-Public Use
  Company Number: QA-ABBVIE-20P-132-3708465-00

PATIENT
  Age: 31 Year
  Sex: Male

DRUGS (1)
  1. KLACID XL [Suspect]
     Active Substance: CLARITHROMYCIN
     Indication: PHARYNGOTONSILLITIS
     Route: 048

REACTIONS (1)
  - Supraventricular tachycardia [Unknown]
